FAERS Safety Report 6826504-X (Version None)
Quarter: 2010Q3

REPORT INFORMATION
  Report Type: 
  Country: None (occurrence: None)
  Receive Date: 20100709
  Receipt Date: 20070525
  Transmission Date: 20110219
  Serious: Yes (Other)
  Sender: FDA-Public Use
  Company Number: PHFR2007GB01337

PATIENT
  Sex: Female

DRUGS (2)
  1. VOLTAREN [Suspect]
     Indication: RHEUMATOID ARTHRITIS
     Dosage: 100MG DAILY
     Route: 048
     Dates: start: 20050301, end: 20061201
  2. PREDNISOLONE [Suspect]
     Indication: RHEUMATOID ARTHRITIS
     Dosage: 7.5MG DAILY
     Route: 048
     Dates: start: 20050301, end: 20061201

REACTIONS (1)
  - INFERTILITY FEMALE [None]
